FAERS Safety Report 5958592-7 (Version None)
Quarter: 2008Q4

REPORT INFORMATION
  Report Type: 
  Country: None (occurrence: None)
  Receive Date: 20081119
  Receipt Date: 20081107
  Transmission Date: 20090506
  Serious: Yes (Hospitalization, Other)
  Sender: FDA-Public Use
  Company Number: AR-PFIZER INC-2008084315

PATIENT
  Age: 27 Year
  Sex: Male

DRUGS (2)
  1. LYRICA [Suspect]
     Indication: ANXIETY
     Route: 048
     Dates: start: 20080701, end: 20081001
  2. SERTRALINE [Suspect]
     Route: 048
     Dates: start: 20080701, end: 20081001

REACTIONS (4)
  - BENIGN INTRACRANIAL HYPERTENSION [None]
  - BRAIN OEDEMA [None]
  - HEADACHE [None]
  - MENINGITIS VIRAL [None]
